FAERS Safety Report 7126156-8 (Version None)
Quarter: 2010Q4

REPORT INFORMATION
  Report Type: 
  Country: None (occurrence: None)
  Receive Date: 20101115
  Receipt Date: 20101030
  Transmission Date: 20110411
  Serious: Yes (Hospitalization, Other)
  Sender: FDA-Public Use
  Company Number: 2010AP002311

PATIENT
  Age: 79 Year
  Sex: Female

DRUGS (1)
  1. ALENDRONATE SODIUM [Suspect]

REACTIONS (4)
  - CHEMICAL INJURY [None]
  - DEHYDRATION [None]
  - DIVERTICULITIS OESOPHAGEAL [None]
  - WEIGHT DECREASED [None]
